FAERS Safety Report 9510959 (Version 2)
Quarter: 2013Q4

REPORT INFORMATION
  Report Type: Spontaneous
  Country: US (occurrence: US)
  Receive Date: 20130910
  Receipt Date: 20131015
  Transmission Date: 20140711
  Serious: Yes (Hospitalization, Other)
  Sender: FDA-Public Use
  Company Number: US-MERCK-1309USA001748

PATIENT
  Age: 59 Year
  Sex: Female

DRUGS (6)
  1. REBETOL [Suspect]
     Indication: HEPATITIS C
     Dosage: UNK
     Dates: start: 20120729, end: 20121129
  2. REBETOL [Suspect]
     Dosage: UNK
     Dates: start: 20130731
  3. PEGINTRON [Suspect]
     Indication: HEPATITIS C
     Dosage: REDIPEN
     Dates: start: 20120729, end: 20121129
  4. PEGINTRON [Suspect]
     Dosage: REDIPEN
     Dates: start: 20130731
  5. INCIVEK [Suspect]
     Indication: HEPATITIS C
     Dosage: UNK
     Dates: start: 20120729, end: 20121129
  6. INCIVEK [Suspect]
     Dosage: UNK
     Dates: start: 20130731

REACTIONS (26)
  - Abdominal pain [Unknown]
  - Ovarian disorder [Unknown]
  - Convulsion [Unknown]
  - Cerebrovascular accident [Unknown]
  - Red blood cell count decreased [Unknown]
  - Platelet count decreased [Not Recovered/Not Resolved]
  - Convulsion [Unknown]
  - Cerebrovascular accident [Unknown]
  - Haemoglobin decreased [Unknown]
  - Night sweats [Unknown]
  - White blood cell count decreased [Unknown]
  - Abdominal pain upper [Unknown]
  - Inappropriate schedule of drug administration [Unknown]
  - Red blood cell count decreased [Unknown]
  - White blood cell count decreased [Unknown]
  - Platelet count decreased [Unknown]
  - Dyspnoea [Unknown]
  - Injection site reaction [Unknown]
  - Asthenia [Unknown]
  - Fatigue [Unknown]
  - Platelet count decreased [Unknown]
  - Ovarian disorder [Unknown]
  - Ovarian mass [Unknown]
  - Hysterectomy [Unknown]
  - Viral load increased [Unknown]
  - Asthenia [Unknown]
